FAERS Safety Report 6921013-1 (Version None)
Quarter: 2010Q3

REPORT INFORMATION
  Report Type: 
  Country: None (occurrence: None)
  Receive Date: 20100812
  Receipt Date: 20100730
  Transmission Date: 20110219
  Serious: Yes (Other)
  Sender: FDA-Public Use
  Company Number: US-PFIZER INC-2010096591

PATIENT
  Sex: Male

DRUGS (3)
  1. LIPITOR [Suspect]
     Dosage: UNK
     Dates: start: 20100401
  2. LISINOPRIL [Suspect]
     Dosage: UNK
     Route: 065
     Dates: start: 20090101
  3. FENOFIBRIC ACID [Suspect]
     Dosage: UNK
     Route: 065
     Dates: start: 20091101, end: 20100101

REACTIONS (3)
  - DIZZINESS [None]
  - DYSPNOEA [None]
  - PARAESTHESIA [None]
